FAERS Safety Report 8852695 (Version 1)
Quarter: 2012Q4

REPORT INFORMATION
  Report Type: 
  Country: BR (occurrence: BR)
  Receive Date: 20121022
  Receipt Date: 20121022
  Transmission Date: 20130627
  Serious: Yes (Other)
  Sender: FDA-Public Use
  Company Number: PHHY2012BR093216

PATIENT
  Sex: Female

DRUGS (9)
  1. RASILEZ [Suspect]
     Indication: HYPERTENSION
     Dosage: 1 DF; one tablet in night
     Route: 048
  2. OLMETEC [Suspect]
     Indication: HYPERTENSION
     Dosage: 1 DF one tablet per day
     Route: 048
  3. GALVUS MET [Concomitant]
     Indication: DIABETES MELLITUS
  4. METFORMIN [Concomitant]
  5. SAXAGLIPTIN [Concomitant]
  6. GLIMEPIRIDE [Concomitant]
  7. PURAN T4 [Concomitant]
     Dosage: 50 mg, UNK
  8. PURAN T4 [Concomitant]
     Dosage: 75 mg, UNK
  9. PURAN T4 [Concomitant]
     Dosage: 100 mg, UNK

REACTIONS (4)
  - Benign neoplasm of thyroid gland [Recovering/Resolving]
  - Hypothyroidism [Recovering/Resolving]
  - Vitamin D abnormal [Recovering/Resolving]
  - Blood thyroid stimulating hormone abnormal [Recovering/Resolving]
